FAERS Safety Report 4461347-6 (Version None)
Quarter: 2004Q3

REPORT INFORMATION
  Report Type: 
  Country: None (occurrence: None)
  Receive Date: 20040928
  Receipt Date: 20040923
  Transmission Date: 20050211
  Serious: Yes (Other)
  Sender: FDA-Public Use
  Company Number: US-BRISTOL-MYERS SQUIBB COMPANY-12710745

PATIENT
  Age: 6 Decade
  Sex: Male

DRUGS (5)
  1. ERBITUX [Suspect]
     Indication: COLORECTAL CANCER
     Dosage: 1ST DOSE, 2ND DOSE 23-SEP-04
     Route: 042
     Dates: start: 20040916, end: 20040916
  2. BENADRYL [Concomitant]
     Indication: PREMEDICATION
     Route: 042
     Dates: start: 20040916, end: 20040916
  3. DECADRON [Concomitant]
     Indication: PREMEDICATION
     Route: 042
     Dates: start: 20040916, end: 20040916
  4. DEPAKOTE [Concomitant]
  5. DILAUDID [Concomitant]

REACTIONS (3)
  - BACK PAIN [None]
  - CHILLS [None]
  - HYPERHIDROSIS [None]
